FAERS Safety Report 9170719 (Version 1)
Quarter: 2013Q1

REPORT INFORMATION
  Report Type: Spontaneous
  Country: FR (occurrence: None)
  Receive Date: 20130312
  Receipt Date: 20130312
  Transmission Date: 20140127
  Serious: Yes (Hospitalization, Other)
  Sender: FDA-Public Use
  Company Number: SYM-2013-01496

PATIENT
  Age: 46 Year
  Sex: 0

DRUGS (4)
  1. ZYBAN [Suspect]
     Indication: DEPRESSION
  2. EFFEXOR [Suspect]
     Indication: DEPRESSION
  3. ABILIFY [Suspect]
     Indication: DEPRESSION
  4. QUETIAPINE [Suspect]
     Indication: DEPRESSION

REACTIONS (5)
  - Drug ineffective [None]
  - Off label use [None]
  - Major depression [None]
  - Brain injury [None]
  - Procedural complication [None]
